FAERS Safety Report 4870490-9 (Version None)
Quarter: 2005Q4

REPORT INFORMATION
  Report Type: 
  Country: None (occurrence: None)
  Receive Date: 20051228
  Receipt Date: 20051216
  Transmission Date: 20060501
  Serious: Yes (Other)
  Sender: FDA-Public Use
  Company Number: USA050699745

PATIENT
  Age: 76 Year
  Sex: Female
  Weight: 56.8 kg

DRUGS (8)
  1. FORTEO [Suspect]
     Indication: OSTEOPOROSIS
     Dosage: 20 UG, DAILY (1/D),
     Dates: start: 20040601, end: 20050301
  2. FORTEO [Suspect]
     Indication: OSTEOPOROSIS
     Dosage: 20 UG, DAILY (1/D),
     Dates: start: 20050601, end: 20051214
  3. DIOVAN [Concomitant]
  4. SYNTHROID [Concomitant]
  5. ACEBUTOLOL [Concomitant]
  6. XALATAN [Concomitant]
  7. FOLTX [Concomitant]
  8. FORTEO PEN, 250MCG/ML (3ML) (FORTEO PEN 250MCG/ML (3ML)) PEN, DISPOSAB [Concomitant]

REACTIONS (2)
  - PHARMACEUTICAL PRODUCT COMPLAINT [None]
  - POLYMYOSITIS [None]
